FAERS Safety Report 10334428 (Version 2)
Quarter: 2014Q4

REPORT INFORMATION
  Report Type: Spontaneous
  Country: US (occurrence: US)
  Receive Date: 20140723
  Receipt Date: 20141017
  Transmission Date: 20150528
  Serious: Yes (Hospitalization)
  Sender: FDA-Public Use
  Company Number: US-SUN PHARMACEUTICAL INDUSTRIES LTD-2014SUN01584

PATIENT

DRUGS (5)
  1. MIRTAZAPINE 15 MG TABLET [Suspect]
     Active Substance: MIRTAZAPINE
     Indication: DEPRESSION
     Dosage: 15 MG, QD
     Route: 065
  2. CITALOPRAM HBR TABS 40MG [Suspect]
     Active Substance: CITALOPRAM HYDROBROMIDE
     Dosage: 60 MG, QD
     Route: 065
  3. BUPROPION HYDROCHLORIDE EXTENDED RELEASE SR [Suspect]
     Active Substance: BUPROPION HYDROCHLORIDE
     Indication: DEPRESSION
     Dosage: 200 MG, BID
     Route: 065
  4. CITALOPRAM HBR TABS 40MG [Suspect]
     Active Substance: CITALOPRAM HYDROBROMIDE
     Indication: DEPRESSION
     Dosage: 40 MG, QD
     Route: 065
  5. BUPRENORPHINE [Concomitant]
     Active Substance: BUPRENORPHINE
     Indication: DRUG DEPENDENCE
     Dosage: 8 MG, TID

REACTIONS (2)
  - Reversible cerebral vasoconstriction syndrome [Recovering/Resolving]
  - Serotonin syndrome [Recovering/Resolving]
